FAERS Safety Report 8928128 (Version 2)
Quarter: 2013Q1

REPORT INFORMATION
  Report Type: Spontaneous
  Country: US (occurrence: US)
  Receive Date: 20121128
  Receipt Date: 20130204
  Transmission Date: 20140127
  Serious: Yes (Hospitalization)
  Sender: FDA-Public Use
  Company Number: US-BAXTER-2012BAX023702

PATIENT
  Age: 58 Year
  Sex: Male

DRUGS (2)
  1. DIANEAL LOW CALCIUM (ULTRABAG) [Suspect]
     Indication: PERITONEAL DIALYSIS
     Route: 033
  2. DIANEAL LOW CALCIUM (ULTRABAG) [Suspect]
     Indication: PERITONEAL DIALYSIS
     Route: 033

REACTIONS (6)
  - Osteomyelitis [Recovering/Resolving]
  - Wound infection [Recovering/Resolving]
  - Laceration [Recovering/Resolving]
  - Cellulitis [Recovering/Resolving]
  - Skin ulcer [Recovering/Resolving]
  - Gangrene [Recovering/Resolving]
